FAERS Safety Report 7401752-9 (Version None)
Quarter: 2011Q2

REPORT INFORMATION
  Report Type: 
  Country: None (occurrence: None)
  Receive Date: 20110408
  Receipt Date: 20110331
  Transmission Date: 20111010
  Serious: Yes (Death, Hospitalization, Other)
  Sender: FDA-Public Use
  Company Number: IT-BAYER-2011-014143

PATIENT
  Sex: Male

DRUGS (8)
  1. METFORMIN HCL [Concomitant]
     Dosage: DAILY DOSE 3000 MG
     Route: 048
  2. ASPIRIN [Concomitant]
     Dosage: 100 MG, QD
     Route: 048
  3. LANSOPRAZOLE [Concomitant]
     Dosage: DAILY DOSE 30 MG
     Route: 048
  4. SIMESTAT [Concomitant]
     Dosage: DAILY DOSE 10 MG
     Route: 048
  5. OLMESARTAN MEDOXOMIL [Concomitant]
     Dosage: DAILY DOSE 10 MG
     Route: 048
  6. NEXAVAR [Suspect]
     Indication: HEPATIC NEOPLASM MALIGNANT
     Dosage: DAILY DOSE 800 MG
     Route: 048
     Dates: start: 20101102, end: 20110120
  7. MODURETIC 5-50 [Concomitant]
     Dosage: DAILY DOSE 55 MG
     Route: 048
  8. DIAMICRON [Concomitant]
     Dosage: DAILY DOSE 30 MG
     Route: 048

REACTIONS (3)
  - RENAL FAILURE [None]
  - HEPATORENAL SYNDROME [None]
  - ASCITES [None]
